FAERS Safety Report 14008890 (Version 2)
Quarter: 2017Q3

REPORT INFORMATION
  Report Type: Spontaneous
  Country: FR (occurrence: FR)
  Receive Date: 20170925
  Receipt Date: 20170926
  Transmission Date: 20171128
  Serious: Yes (Other)
  Sender: FDA-Public Use
  Company Number: FR-TEVA-807532ROM

PATIENT
  Sex: Female

DRUGS (5)
  1. TEVAGRASTIM [Suspect]
     Active Substance: FILGRASTIM
     Dosage: 3 INJECTIONS
     Route: 065
  2. VINBLASTINE [Concomitant]
     Active Substance: VINBLASTINE
     Indication: HODGKIN^S DISEASE
     Dosage: SEVERAL CYCLES OF ABVD PROTOCOL
     Route: 065
  3. DACARBAZINE. [Concomitant]
     Active Substance: DACARBAZINE
     Indication: HODGKIN^S DISEASE
     Dosage: SEVERAL CYCLES OF ABVD PROTOCOL
     Route: 065
  4. BLEOMYCIN [Concomitant]
     Active Substance: BLEOMYCIN SULFATE
     Indication: HODGKIN^S DISEASE
     Dosage: SEVERAL CYCLES OF ABVD PROTOCOL
     Route: 065
  5. DOXORUBICIN [Concomitant]
     Active Substance: DOXORUBICIN
     Indication: HODGKIN^S DISEASE
     Dosage: SEVERAL CYCLES OF ABVD PROTOCOL
     Route: 065

REACTIONS (2)
  - Chloroma [Unknown]
  - Lymphadenopathy [Unknown]
